FAERS Safety Report 10213727 (Version 1)
Quarter: 2014Q2

REPORT INFORMATION
  Report Type: Spontaneous
  Country: IN (occurrence: None)
  Receive Date: 20140530
  Receipt Date: 20140530
  Transmission Date: 20141212
  Serious: Yes (Other)
  Sender: FDA-Public Use
  Company Number: UCM201405-000087

PATIENT
  Age: 32 Year
  Sex: Male

DRUGS (3)
  1. DIVALPROEX SODIUM [Suspect]
     Indication: CONVULSION
     Dosage: 400 MG PER DAY IN DIVIDED DOSES, 400 MG PER DAY IN DIVIDED DOSES
  2. SODIUM PHENYTOIN [Suspect]
     Indication: CONVULSION
     Dosage: 300 MG PER DAY IN DIVIDED DOSES, 300 MG PER DAY IN DIVIDED DOSES
  3. ESCITALOPRAM [Suspect]
     Indication: DEPRESSIVE SYMPTOM
     Dosage: 10 MG PER DAY, 10 MG PER DAY

REACTIONS (2)
  - Dystonia [None]
  - Protrusion tongue [None]
